FAERS Safety Report 9045629 (Version 1)
Quarter: 2013Q1

REPORT INFORMATION
  Report Type: Report from Study
  Country: US (occurrence: US)
  Receive Date: 20130131
  Receipt Date: 20130131
  Transmission Date: 20140127
  Serious: No
  Sender: FDA-Public Use
  Company Number: US-ABBOTT-12P-163-1011179-00

PATIENT
  Age: 18 None
  Sex: Female
  Weight: 55.84 kg

DRUGS (2)
  1. HUMIRA [Suspect]
     Indication: RHEUMATOID ARTHRITIS
     Dates: start: 201107
  2. HUMIRA [Suspect]
     Indication: FIBROMYALGIA
     Dates: start: 201107

REACTIONS (5)
  - Urticaria [Recovered/Resolved]
  - Rash [Recovered/Resolved]
  - Off label use [Not Recovered/Not Resolved]
  - Drug dose omission [Not Recovered/Not Resolved]
  - Device malfunction [Recovering/Resolving]
